FAERS Safety Report 9537611 (Version 1)
Quarter: 2013Q3

REPORT INFORMATION
  Report Type: Spontaneous
  Country: US (occurrence: US)
  Receive Date: 20130919
  Receipt Date: 20130919
  Transmission Date: 20140515
  Serious: Yes (Life-Threatening, Other)
  Sender: FDA-Public Use
  Company Number: US-BAYER-2013-113082

PATIENT
  Sex: Female

DRUGS (2)
  1. YAZ [Suspect]
     Dosage: UNK
     Dates: start: 2007
  2. YASMIN [Suspect]
     Dosage: UNK
     Dates: start: 2007

REACTIONS (4)
  - Abortion spontaneous [None]
  - Pregnancy on oral contraceptive [None]
  - Drug ineffective [None]
  - Menorrhagia [None]
